FAERS Safety Report 23061040 (Version 2)
Quarter: 2023Q4

REPORT INFORMATION
  Report Type: Report from Study
  Country: US (occurrence: US)
  Receive Date: 20231013
  Receipt Date: 20231123
  Transmission Date: 20240110
  Serious: Yes (Other)
  Sender: FDA-Public Use
  Company Number: US-ABBVIE-5446329

PATIENT
  Age: 61 Year
  Sex: Male

DRUGS (1)
  1. RINVOQ [Suspect]
     Active Substance: UPADACITINIB
     Indication: Dermatitis atopic
     Dosage: DRUG END DATE - 2023
     Route: 048
     Dates: start: 20230415

REACTIONS (2)
  - Deep vein thrombosis [Unknown]
  - Ankle fracture [Unknown]

NARRATIVE: CASE EVENT DATE: 20230701
